FAERS Safety Report 6208469-7 (Version None)
Quarter: 2009Q2

REPORT INFORMATION
  Report Type: 
  Country: None (occurrence: None)
  Receive Date: 20090527
  Receipt Date: 20081204
  Transmission Date: 20091009
  Serious: Yes (Hospitalization)
  Sender: FDA-Public Use
  Company Number: M-08-1268

PATIENT
  Sex: Female

DRUGS (1)
  1. KLOR-CON [Suspect]

REACTIONS (1)
  - SMALL INTESTINAL OBSTRUCTION [None]
